FAERS Safety Report 8393342-9 (Version None)
Quarter: 2012Q2

REPORT INFORMATION
  Report Type: 
  Country: None (occurrence: None)
  Receive Date: 20120529
  Receipt Date: 20120519
  Transmission Date: 20120825
  Serious: Yes (Other)
  Sender: FDA-Public Use
  Company Number: US-FRI-1000030655

PATIENT
  Age: 20 Year
  Sex: Female

DRUGS (4)
  1. VIIBRYD [Suspect]
     Dosage: 40 MG
     Dates: start: 20120426, end: 20120101
  2. VIIBRYD [Suspect]
  3. VIIBRYD [Suspect]
     Indication: DEPRESSION
     Dosage: 20 MG
     Dates: start: 20120419, end: 20120425
  4. VIIBRYD [Suspect]
     Indication: ANXIETY

REACTIONS (1)
  - PSYCHOTIC DISORDER [None]
